FAERS Safety Report 5444608-3 (Version None)
Quarter: 2007Q3

REPORT INFORMATION
  Report Type: 
  Country: None (occurrence: None)
  Receive Date: 20070830
  Receipt Date: 20070820
  Transmission Date: 20080115
  Serious: Yes (Other)
  Sender: FDA-Public Use
  Company Number: CHNY2007JP02853

PATIENT
  Age: 50 Year
  Sex: Male

DRUGS (1)
  1. NICOTINE [Suspect]
     Indication: SMOKING CESSATION THERAPY
     Dosage: 21 MG, TRANSDERMAL
     Route: 062

REACTIONS (5)
  - ANXIETY [None]
  - DRUG TOXICITY [None]
  - HEADACHE [None]
  - PANIC ATTACK [None]
  - STOMACH DISCOMFORT [None]
